FAERS Safety Report 8598451-7 (Version None)
Quarter: 2012Q3

REPORT INFORMATION
  Report Type: 
  Country: None (occurrence: None)
  Receive Date: 20120816
  Receipt Date: 20120814
  Transmission Date: 20120928
  Serious: Yes (Other)
  Sender: FDA-Public Use
  Company Number: FR-BAYER-2012-083557

PATIENT
  Age: 76 Year
  Sex: Female

DRUGS (3)
  1. VANCOMYCIN [Suspect]
  2. TICARCILLIN [Suspect]
  3. CIPROFLOXACIN [Suspect]

REACTIONS (2)
  - HEPATITIS [None]
  - DRUG RASH WITH EOSINOPHILIA AND SYSTEMIC SYMPTOMS [None]
